FAERS Safety Report 16688308 (Version 5)
Quarter: 2020Q1

REPORT INFORMATION
  Report Type: Spontaneous
  Country: US (occurrence: US)
  Receive Date: 20190809
  Receipt Date: 20200316
  Transmission Date: 20200409
  Serious: Yes (Hospitalization, Other)
  Sender: FDA-Public Use
  Company Number: US-PFIZER INC-2019339949

PATIENT
  Age: 82 Year
  Sex: Female

DRUGS (1)
  1. XELJANZ XR [Suspect]
     Active Substance: TOFACITINIB CITRATE
     Dosage: 11 MG, UNK

REACTIONS (19)
  - Thrombosis [Unknown]
  - Balance disorder [Unknown]
  - Hypothermia [Unknown]
  - Blindness [Unknown]
  - Haemorrhage [Unknown]
  - Depression [Unknown]
  - Loss of personal independence in daily activities [Unknown]
  - Blood pressure fluctuation [Unknown]
  - Fatigue [Unknown]
  - Psychiatric symptom [Unknown]
  - Anxiety [Unknown]
  - Neuropathy peripheral [Unknown]
  - Carotid artery disease [Unknown]
  - Gait disturbance [Unknown]
  - Pain [Not Recovered/Not Resolved]
  - Pyrexia [Unknown]
  - Infection [Unknown]
  - Fall [Unknown]
  - Back injury [Unknown]

NARRATIVE: CASE EVENT DATE: 201908
